FAERS Safety Report 7168527-X (Version None)
Quarter: 2010Q4

REPORT INFORMATION
  Report Type: 
  Country: None (occurrence: None)
  Receive Date: 20101216
  Receipt Date: 20100113
  Transmission Date: 20110411
  Serious: No
  Sender: FDA-Public Use
  Company Number: US-AMGEN-TCS385563

PATIENT

DRUGS (8)
  1. ENBREL [Suspect]
     Indication: PSORIASIS
     Dosage: 50 MG, 2 TIMES/WK
     Dates: start: 20090701
  2. CALCIUM CARBONATE [Concomitant]
     Dosage: UNK UNK, UNK
  3. SIMVASTATIN [Concomitant]
     Dosage: UNK UNK, UNK
  4. LISINOPRIL [Concomitant]
     Dosage: UNK UNK, UNK
  5. MAXIDEX [Concomitant]
     Dosage: UNK UNK, UNK
  6. TOPROL-XL [Concomitant]
     Dosage: UNK UNK, UNK
  7. POTASSIUM CHLORIDE [Concomitant]
     Dosage: UNK UNK, UNK
  8. OMEPRAZOLE [Concomitant]
     Dosage: UNK UNK, UNK

REACTIONS (1)
  - THERAPEUTIC RESPONSE DECREASED [None]
